FAERS Safety Report 20539408 (Version 2)
Quarter: 2022Q1

REPORT INFORMATION
  Report Type: Spontaneous
  Country: JP (occurrence: JP)
  Receive Date: 20220302
  Receipt Date: 20220314
  Transmission Date: 20220424
  Serious: Yes (Death, Life-Threatening, Hospitalization, Other)
  Sender: FDA-Public Use
  Company Number: JP-MLMSERVICE-20220211-3360839-1

PATIENT
  Age: 51 Year
  Sex: Male

DRUGS (2)
  1. DOCETAXEL [Suspect]
     Active Substance: DOCETAXEL
     Dosage: D1, EVERY 3 WEEKS
  2. OXYGEN [Concomitant]
     Active Substance: OXYGEN
     Dosage: RESERVOIR MASK 10
     Route: 055

REACTIONS (2)
  - Arterial haemorrhage [Fatal]
  - Cardio-respiratory arrest [Fatal]
